FAERS Safety Report 4473215-4 (Version None)
Quarter: 2004Q4

REPORT INFORMATION
  Report Type: 
  Country: None (occurrence: None)
  Receive Date: 20041007
  Receipt Date: 20041007
  Transmission Date: 20050328
  Serious: Yes (Hospitalization)
  Sender: FDA-Public Use
  Company Number: None

PATIENT
  Age: 51 Year
  Sex: Male

DRUGS (1)
  1. EPINEPHRINE [Suspect]
     Dosage: INJECTABLE

REACTIONS (4)
  - ELECTROCARDIOGRAM ABNORMAL [None]
  - MEDICATION ERROR [None]
  - TROPONIN INCREASED [None]
  - VENTRICULAR TACHYCARDIA [None]
